FAERS Safety Report 4931223-0 (Version None)
Quarter: 2006Q1

REPORT INFORMATION
  Report Type: 
  Country: None (occurrence: None)
  Receive Date: 20060302
  Receipt Date: 20060222
  Transmission Date: 20060701
  Serious: Yes (Disabling)
  Sender: FDA-Public Use
  Company Number: US-MERCK-0602USA05194

PATIENT
  Sex: Female

DRUGS (12)
  1. STROMECTOL [Suspect]
     Indication: ACARODERMATITIS
     Route: 048
     Dates: start: 20000808, end: 20000808
  2. STROMECTOL [Suspect]
     Route: 048
     Dates: start: 20000811, end: 20000811
  3. STROMECTOL [Suspect]
     Route: 048
     Dates: start: 20000825, end: 20000825
  4. STROMECTOL [Suspect]
     Route: 048
     Dates: start: 20000905, end: 20000905
  5. STROMECTOL [Suspect]
     Route: 048
     Dates: start: 20000915, end: 20000915
  6. STROMECTOL [Suspect]
     Route: 048
     Dates: start: 20000918, end: 20000918
  7. STROMECTOL [Suspect]
     Route: 048
     Dates: start: 20010507, end: 20010507
  8. STROMECTOL [Suspect]
     Route: 048
     Dates: start: 20020926, end: 20020926
  9. LINDANE [Concomitant]
     Route: 065
  10. KWELL [Concomitant]
     Route: 065
  11. [THERAPY UNSPECIFIED] [Concomitant]
     Route: 065
  12. STROMECTOL [Suspect]
     Route: 048
     Dates: start: 20000801, end: 20000801

REACTIONS (2)
  - HODGKIN'S DISEASE [None]
  - PRESCRIBED OVERDOSE [None]
